FAERS Safety Report 6390123-2 (Version None)
Quarter: 2009Q4

REPORT INFORMATION
  Report Type: 
  Country: None (occurrence: None)
  Receive Date: 20091006
  Receipt Date: 20091001
  Transmission Date: 20100525
  Serious: Yes (Life-Threatening)
  Sender: FDA-Public Use
  Company Number: NL-NOVOPROD-292371

PATIENT
  Age: 64 Year
  Sex: Female
  Weight: 70 kg

DRUGS (6)
  1. LEVEMIR [Suspect]
     Indication: TYPE 1 DIABETES MELLITUS
  2. NOVORAPID PENFILL [Suspect]
     Indication: TYPE 1 DIABETES MELLITUS
  3. KLACID                             /00984601/ [Concomitant]
     Dosage: 500 MG, QD
     Route: 048
     Dates: start: 20090908
  4. EZETROL [Concomitant]
     Dosage: 10 MG, QD
     Route: 048
     Dates: start: 20080101
  5. XALATAN [Concomitant]
     Dosage: 50 UG/ML, UNK
     Route: 057
     Dates: start: 20080101
  6. COZAAR [Concomitant]
     Dosage: 50 MG, BID
     Dates: start: 20080101

REACTIONS (3)
  - BLOOD GLUCOSE DECREASED [None]
  - DIARRHOEA [None]
  - DRUG INTERACTION [None]
